FAERS Safety Report 4642279-7 (Version None)
Quarter: 2005Q2

REPORT INFORMATION
  Report Type: 
  Country: None (occurrence: None)
  Receive Date: 20050422
  Receipt Date: 20050415
  Transmission Date: 20051028
  Serious: Yes (Other)
  Sender: FDA-Public Use
  Company Number: BR-BRISTOL-MYERS SQUIBB COMPANY-12940359

PATIENT
  Age: 88 Year
  Sex: Female
  Weight: 52 kg

DRUGS (6)
  1. TEQUIN [Suspect]
     Indication: URINARY TRACT INFECTION
     Route: 048
     Dates: start: 20050415
  2. TEQUIN [Suspect]
     Indication: LUNG INFECTION
     Route: 048
     Dates: start: 20050415
  3. AMARYL [Concomitant]
  4. FLUIMUCIL [Concomitant]
  5. NATRILIX [Concomitant]
  6. NAPRIX [Concomitant]

REACTIONS (1)
  - HYPOGLYCAEMIA [None]
